FAERS Safety Report 4590658-9 (Version None)
Quarter: 2005Q1

REPORT INFORMATION
  Report Type: 
  Country: None (occurrence: None)
  Receive Date: 20050218
  Receipt Date: 20050218
  Transmission Date: 20050727
  Serious: Yes (Hospitalization)
  Sender: FDA-Public Use
  Company Number: None

PATIENT
  Age: 26 Year
  Sex: Male
  Weight: 79 kg

DRUGS (6)
  1. PRECEDEX [Suspect]
     Indication: AGITATION
     Dosage: 0.5MCG/KG   DRIP   PARENTERAL
     Route: 051
     Dates: start: 20041221, end: 20041225
  2. PHENYTOIN [Suspect]
     Indication: CONVULSION
     Dosage: 100MG  Q8H   PARENTERAL
     Route: 051
     Dates: start: 20041221, end: 20041225
  3. CEFTRIAXONE [Concomitant]
  4. DEXAMETHASONE [Concomitant]
  5. MORPHINE [Concomitant]
  6. VANCOMYCIN [Concomitant]

REACTIONS (1)
  - ELECTROCARDIOGRAM ABNORMAL [None]
